FAERS Safety Report 8717324 (Version 11)
Quarter: 2015Q3

REPORT INFORMATION
  Report Type: Spontaneous
  Country: US (occurrence: US)
  Receive Date: 20120810
  Receipt Date: 20150715
  Transmission Date: 20151125
  Serious: Yes (Hospitalization, Disabling, Other)
  Sender: FDA-Public Use
  Company Number: US-009507513-1208USA000319

PATIENT
  Sex: Female
  Weight: 57.6 kg

DRUGS (3)
  1. RECLAST [Suspect]
     Active Substance: ZOLEDRONIC ACID
     Indication: OSTEOPENIA
     Dosage: UNK
     Route: 048
     Dates: start: 200807, end: 201010
  2. FORTEO [Suspect]
     Active Substance: TERIPARATIDE
     Dosage: 20 MICROGRAM, QD
     Route: 058
     Dates: start: 201012
  3. FOSAMAX [Suspect]
     Active Substance: ALENDRONATE SODIUM
     Indication: OSTEOPENIA
     Dosage: 70 MG, UNK
     Route: 048
     Dates: start: 200211

REACTIONS (65)
  - Deep vein thrombosis [Recovered/Resolved with Sequelae]
  - Open reduction of fracture [Unknown]
  - Vena cava filter insertion [Unknown]
  - Hypoaesthesia [Unknown]
  - Thrombocytosis [Unknown]
  - Weight increased [Unknown]
  - Atrophic vulvovaginitis [Unknown]
  - Blood homocysteine increased [Unknown]
  - Bone density decreased [Unknown]
  - Drug ineffective [Unknown]
  - Open reduction of fracture [Unknown]
  - Peroneal nerve palsy [Unknown]
  - Fall [Unknown]
  - Gait disturbance [Unknown]
  - Atrophy [Unknown]
  - Haemorrhoids [Unknown]
  - Urinary tract infection [Unknown]
  - Arthralgia [Unknown]
  - Limb injury [Unknown]
  - Femur fracture [Recovered/Resolved]
  - Device malfunction [Not Recovered/Not Resolved]
  - Surgery [Unknown]
  - Pain in extremity [Unknown]
  - Irritable bowel syndrome [Unknown]
  - Fibromyalgia [Unknown]
  - Spondylolisthesis [Recovering/Resolving]
  - Rash [Unknown]
  - Medical device removal [Unknown]
  - Stem cell transplant [Unknown]
  - Anaemia [Unknown]
  - Hypercalcaemia [Unknown]
  - N-telopeptide urine increased [Unknown]
  - Spinal compression fracture [Unknown]
  - Spinal fusion surgery [Recovering/Resolving]
  - Fracture nonunion [Recovered/Resolved]
  - Ovarian cyst [Unknown]
  - Ankle fracture [Not Recovered/Not Resolved]
  - Vitamin D deficiency [Unknown]
  - Bladder irritation [Unknown]
  - Hypertension [Unknown]
  - Thyroid neoplasm [Unknown]
  - Exercise tolerance decreased [Unknown]
  - Gait disturbance [Unknown]
  - Osteoarthritis [Unknown]
  - Wound infection staphylococcal [Recovered/Resolved]
  - Post procedural haemorrhage [Unknown]
  - Peroneal nerve injury [Unknown]
  - Neuropathy peripheral [Unknown]
  - Throat tightness [Unknown]
  - Scar [Unknown]
  - Urinary incontinence [Unknown]
  - Hypoaesthesia [Not Recovered/Not Resolved]
  - Wound infection bacterial [Recovered/Resolved]
  - Fall [Not Recovered/Not Resolved]
  - Wound [Unknown]
  - Wound dehiscence [Unknown]
  - Impaired healing [Unknown]
  - Hypercholesterolaemia [Unknown]
  - Foot fracture [Unknown]
  - Limb asymmetry [Unknown]
  - Cyanosis [Unknown]
  - Pelvic deformity [Unknown]
  - Weight increased [Unknown]
  - Lumbar spinal stenosis [Unknown]
  - Arthralgia [Unknown]

NARRATIVE: CASE EVENT DATE: 2003
